FAERS Safety Report 10643042 (Version 1)
Quarter: 2014Q4

REPORT INFORMATION
  Report Type: Spontaneous
  Country: US (occurrence: None)
  Receive Date: 20141121
  Receipt Date: 20141121
  Transmission Date: 20150529
  Serious: No
  Sender: FDA-Public Use
  Company Number: USA-2014094757

PATIENT
  Age: 54 Year
  Sex: Female

DRUGS (7)
  1. PRAVASTATIN [Concomitant]
     Active Substance: PRAVASTATIN\PRAVASTATIN SODIUM
  2. MULTIVITAMIN (ERGOCALCIFEROKL, ASCORBIC ACID, FOLIC ACID, THIAMINE HYDROCHLORIDE, RETINOL, RIBOFLAVIN, NICOTINAMIDE, PANTHENOL) [Concomitant]
  3. LEXAPRO (ESCITALOPRAM) [Concomitant]
  4. ATENOLOL (ATENOLOL) [Concomitant]
     Active Substance: ATENOLOL
  5. PEPCID [Concomitant]
     Active Substance: FAMOTIDINE
  6. CLARITIN [Concomitant]
     Active Substance: LORATADINE
  7. OTEZLA [Suspect]
     Active Substance: APREMILAST
     Indication: PSORIATIC ARTHROPATHY
     Route: 048

REACTIONS (2)
  - Drug dose omission [None]
  - Psoriatic arthropathy [None]
